FAERS Safety Report 19758876 (Version 2)
Quarter: 2021Q3

REPORT INFORMATION
  Report Type: Report from Study
  Country: US (occurrence: US)
  Receive Date: 20210829
  Receipt Date: 20210909
  Transmission Date: 20211014
  Serious: Yes (Other)
  Sender: FDA-Public Use
  Company Number: US-UNITED THERAPEUTICS-UNT-2021-016480

PATIENT
  Sex: Male
  Weight: 72.56 kg

DRUGS (6)
  1. LETAIRIS [Suspect]
     Active Substance: AMBRISENTAN
     Indication: PRODUCT USED FOR UNKNOWN INDICATION
     Dosage: UNK
     Route: 065
  2. ADEMPAS [Suspect]
     Active Substance: RIOCIGUAT
     Dosage: 1.5 MG, TID
     Route: 065
  3. ORENITRAM [Suspect]
     Active Substance: TREPROSTINIL
     Indication: PULMONARY ARTERIAL HYPERTENSION
     Dosage: UNK
     Route: 048
  4. ORAL TREPROSTINIL [Suspect]
     Active Substance: TREPROSTINIL
     Indication: PULMONARY ARTERIAL HYPERTENSION
     Dosage: UNK
     Route: 048
     Dates: start: 20200807
  5. ADEMPAS [Suspect]
     Active Substance: RIOCIGUAT
     Indication: PRODUCT USED FOR UNKNOWN INDICATION
     Dosage: 2 MG, TID
     Route: 065
  6. ORAL TREPROSTINIL [Suspect]
     Active Substance: TREPROSTINIL
     Dosage: 2 MG, Q12H
     Route: 048
     Dates: end: 2021

REACTIONS (7)
  - Fatigue [Unknown]
  - Oxygen saturation decreased [Unknown]
  - Dizziness [Unknown]
  - Abdominal discomfort [Unknown]
  - Nasal oedema [Unknown]
  - Dyspnoea [Unknown]
  - Hypotension [Unknown]
